FAERS Safety Report 6743061-7 (Version None)
Quarter: 2010Q2

REPORT INFORMATION
  Report Type: 
  Country: None (occurrence: None)
  Receive Date: 20100527
  Receipt Date: 20100521
  Transmission Date: 20101027
  Serious: Yes (Other)
  Sender: FDA-Public Use
  Company Number: JP-BAYER-201012520BYL

PATIENT
  Age: 22 Year
  Sex: Male

DRUGS (4)
  1. FLUDARA [Suspect]
     Indication: EPSTEIN-BARR VIRUS INFECTION
     Route: 042
  2. CYCLOPHOSPHAMIDE [Concomitant]
     Indication: EPSTEIN-BARR VIRUS INFECTION
     Route: 065
  3. ETOPOSIDE [Concomitant]
     Indication: EPSTEIN-BARR VIRUS INFECTION
     Route: 065
  4. ANTILYMPHOCYTE IMMUNOGLOBULIN (RABBIT) [Concomitant]
     Indication: EPSTEIN-BARR VIRUS INFECTION
     Route: 065

REACTIONS (4)
  - ACUTE GRAFT VERSUS HOST DISEASE [None]
  - PROTEIN-LOSING GASTROENTEROPATHY [None]
  - RENAL FAILURE [None]
  - RESPIRATORY SYNCYTIAL VIRUS INFECTION [None]
